FAERS Safety Report 24949700 (Version 1)
Quarter: 2025Q1

REPORT INFORMATION
  Report Type: Spontaneous
  Country: SI (occurrence: SI)
  Receive Date: 20250210
  Receipt Date: 20250210
  Transmission Date: 20250409
  Serious: Yes (Hospitalization)
  Sender: SANDOZ
  Company Number: SI-KRKA-SI2025K01255SPO

PATIENT
  Age: 74 Year
  Sex: Female

DRUGS (3)
  1. EXELON [Suspect]
     Active Substance: RIVASTIGMINE TARTRATE
     Indication: Product used for unknown indication
     Route: 065
  2. QUETIAPINE FUMARATE [Suspect]
     Active Substance: QUETIAPINE FUMARATE
     Indication: Product used for unknown indication
     Route: 048
  3. HYDROCHLOROTHIAZIDE\LOSARTAN POTASSIUM [Suspect]
     Active Substance: HYDROCHLOROTHIAZIDE\LOSARTAN POTASSIUM
     Indication: Product used for unknown indication
     Route: 048

REACTIONS (9)
  - Suicide attempt [Unknown]
  - Bradypnoea [Unknown]
  - Pneumonia aspiration [Unknown]
  - Altered state of consciousness [Unknown]
  - Haematoma [Unknown]
  - Dysarthria [Unknown]
  - Somnolence [Unknown]
  - Vomiting [Unknown]
  - Intentional overdose [Unknown]
